FAERS Safety Report 7352433-1 (Version None)
Quarter: 2011Q1

REPORT INFORMATION
  Report Type: 
  Country: None (occurrence: None)
  Receive Date: 20110301
  Receipt Date: 20100715
  Transmission Date: 20110831
  Serious: Yes (Other)
  Sender: FDA-Public Use
  Company Number: 239560USA

PATIENT
  Sex: Male

DRUGS (1)
  1. PROPOFOL [Suspect]
     Dosage: INTRAVENOUS (NOT OTHERWISE SPECIFIED)
     Route: 042

REACTIONS (2)
  - DEVICE MALFUNCTION [None]
  - RESPIRATORY DEPRESSION [None]
